FAERS Safety Report 14257842 (Version 4)
Quarter: 2018Q3

REPORT INFORMATION
  Report Type: Spontaneous
  Country: DE (occurrence: DE)
  Receive Date: 20171207
  Receipt Date: 20180706
  Transmission Date: 20181010
  Serious: Yes (Death, Hospitalization, Other)
  Sender: FDA-Public Use
  Company Number: DE-CIPLA LTD.-2017DE21464

PATIENT

DRUGS (14)
  1. PREDNISOLONE. [Suspect]
     Active Substance: PREDNISOLONE
     Indication: LEUKOPENIA
     Dosage: UNK, Q2WK (14 DAYS CYCLE)
     Route: 065
     Dates: start: 2015
  2. ETOPOSIDE. [Suspect]
     Active Substance: ETOPOSIDE
     Indication: LYMPHOMA
     Dosage: UNK
     Route: 065
     Dates: start: 201506, end: 201507
  3. FILGRASTIM [Suspect]
     Active Substance: FILGRASTIM
     Indication: LEUKOPENIA
     Dosage: 48 MILLION UNITS, QD (5DAYS)
     Route: 058
     Dates: start: 2015
  4. METOPROLOL SUCCINATE. [Concomitant]
     Active Substance: METOPROLOL SUCCINATE
     Indication: PRODUCT USED FOR UNKNOWN INDICATION
     Dosage: UNK
     Route: 065
  5. CYCLOPHOSPHAMIDE. [Suspect]
     Active Substance: CYCLOPHOSPHAMIDE
     Indication: LEUKOPENIA
     Dosage: UNK, Q2WK (14 DAYS CYCLE)
     Route: 065
     Dates: start: 2015
  6. PIXANTRONE [Suspect]
     Active Substance: PIXANTRONE
     Indication: LEUKOPENIA
     Dosage: UNK
     Route: 065
     Dates: start: 201506, end: 201507
  7. AMINOSALICYLIC ACID [Concomitant]
     Active Substance: AMINOSALICYLIC ACID
     Indication: PRODUCT USED FOR UNKNOWN INDICATION
     Dosage: UNK
     Route: 065
  8. BENDAMUSTINE [Suspect]
     Active Substance: BENDAMUSTINE
     Indication: LEUKOPENIA
     Dosage: UNK, 2 CYCLES, CYCLIC
     Route: 065
  9. NAFTIDROFURYL OXALATE [Concomitant]
     Active Substance: NAFRONYL OXALATE
     Indication: PRODUCT USED FOR UNKNOWN INDICATION
     Dosage: UNK
     Route: 065
  10. GEMCITABINE [Suspect]
     Active Substance: GEMCITABINE\GEMCITABINE HYDROCHLORIDE
     Indication: COMPOSITE LYMPHOMA
     Dosage: UNK, 2 CYCLES, CYCLIC
     Route: 065
     Dates: start: 2015
  11. VINCRISTINE [Suspect]
     Active Substance: VINCRISTINE
     Indication: LEUKOPENIA
     Dosage: UNK, Q2WK (14 DAYS CYCLE)
     Route: 065
     Dates: start: 2015
  12. ONDANSETRON [Concomitant]
     Active Substance: ONDANSETRON
     Indication: PREMEDICATION
     Dosage: 8 MG PER SESSION
     Route: 065
  13. OXALIPLATIN. [Suspect]
     Active Substance: OXALIPLATIN
     Indication: COMPOSITE LYMPHOMA
     Dosage: UNK, 2 CYLES, CYCLICAL
     Route: 065
     Dates: start: 2015
  14. DOXORUBICIN HYDROCHLORIDE. [Suspect]
     Active Substance: DOXORUBICIN HYDROCHLORIDE
     Indication: B-CELL LYMPHOMA
     Dosage: 20 MG/M2, UNK
     Route: 065
     Dates: start: 201409

REACTIONS (12)
  - Leukopenia [Unknown]
  - Off label use [Unknown]
  - Rash papular [Unknown]
  - Product use in unapproved indication [Unknown]
  - Rash maculo-papular [Unknown]
  - Malignant neoplasm progression [Fatal]
  - Pneumonia [Fatal]
  - Impaired healing [Unknown]
  - Palmar-plantar erythrodysaesthesia syndrome [Unknown]
  - Skin toxicity [Unknown]
  - Cutaneous lymphoma [Unknown]
  - Bone marrow toxicity [Unknown]

NARRATIVE: CASE EVENT DATE: 201410
